FAERS Safety Report 20116354 (Version 1)
Quarter: 2021Q4

REPORT INFORMATION
  Report Type: Spontaneous
  Country: CA (occurrence: CA)
  Receive Date: 20211126
  Receipt Date: 20211126
  Transmission Date: 20220303
  Serious: Yes (Hospitalization)
  Sender: FDA-Public Use
  Company Number: CA-SAMSUNG BIOEPIS-SB-2021-27326

PATIENT
  Age: 11 Year
  Sex: Female
  Weight: 24 kg

DRUGS (1)
  1. INFLIXIMAB [Suspect]
     Active Substance: INFLIXIMAB
     Indication: Inflammatory bowel disease
     Dosage: UNKNOWN
     Route: 042

REACTIONS (2)
  - Osteomyelitis [Recovered/Resolved]
  - Product use in unapproved indication [Unknown]
